FAERS Safety Report 15549119 (Version 2)
Quarter: 2018Q4

REPORT INFORMATION
  Report Type: Spontaneous
  Country: US (occurrence: US)
  Receive Date: 20181025
  Receipt Date: 20181130
  Transmission Date: 20190205
  Serious: No
  Sender: FDA-Public Use
  Company Number: US-AMGEN INC.-USASP2018147982

PATIENT
  Age: 33 Year
  Sex: Female
  Weight: 62.59 kg

DRUGS (2)
  1. MAGNESIUM [Concomitant]
     Active Substance: MAGNESIUM
     Indication: MIGRAINE
     Dosage: UNK UNK, QD
  2. AIMOVIG [Suspect]
     Active Substance: ERENUMAB-AOOE
     Indication: PRODUCT USED FOR UNKNOWN INDICATION
     Dosage: 70 MG, QMO
     Route: 065
     Dates: start: 20180930, end: 20181107

REACTIONS (3)
  - Constipation [Recovering/Resolving]
  - Pain [Recovering/Resolving]
  - Infrequent bowel movements [Unknown]

NARRATIVE: CASE EVENT DATE: 20180930
